FAERS Safety Report 7462003-2 (Version None)
Quarter: 2011Q2

REPORT INFORMATION
  Report Type: 
  Country: None (occurrence: None)
  Receive Date: 20110506
  Receipt Date: 20110502
  Transmission Date: 20111010
  Serious: Yes (Other)
  Sender: FDA-Public Use
  Company Number: PHHY2011BR37460

PATIENT
  Sex: Male
  Weight: 70 kg

DRUGS (5)
  1. DIOVAN [Suspect]
     Indication: HYPERTENSION
     Dosage: 1 DF, DAILY (320 MG)
     Route: 048
  2. VINPOCETINE [Concomitant]
     Indication: HEAD DISCOMFORT
     Dosage: 1 DF, BID
     Route: 048
  3. RIVOTRIL [Concomitant]
     Indication: HEAD DISCOMFORT
     Dosage: 5 DF, QD, DROPS
     Route: 048
  4. DEPAKENE [Concomitant]
     Indication: HEAD DISCOMFORT
     Dosage: 1 DF, TID
     Route: 048
  5. HYDERGINE [Concomitant]
     Indication: HEAD DISCOMFORT
     Dosage: 1 DF, QD
     Route: 048

REACTIONS (2)
  - BLOOD PRESSURE INCREASED [None]
  - CEREBROVASCULAR ACCIDENT [None]
